FAERS Safety Report 12179104 (Version 1)
Quarter: 2016Q1

REPORT INFORMATION
  Report Type: Report from Study
  Country: JP (occurrence: JP)
  Receive Date: 20160315
  Receipt Date: 20160315
  Transmission Date: 20160526
  Serious: Yes (Death, Hospitalization, Other)
  Sender: FDA-Public Use
  Company Number: PHHY2010JP15841

PATIENT
  Age: 74 Year
  Sex: Male
  Weight: 75 kg

DRUGS (6)
  1. BIO-THREE [Concomitant]
     Active Substance: HERBALS
     Indication: PRODUCT USED FOR UNKNOWN INDICATION
     Dosage: 3 DF
     Route: 048
     Dates: start: 20090501
  2. ICL670A [Suspect]
     Active Substance: DEFERASIROX
     Indication: MYELODYSPLASTIC SYNDROME
     Dosage: 1500 MG, QD
     Route: 048
     Dates: start: 20090407, end: 20090430
  3. CYTOTEC [Concomitant]
     Active Substance: MISOPROSTOL
     Indication: PRODUCT USED FOR UNKNOWN INDICATION
     Dosage: 800 UG
     Route: 048
     Dates: start: 20090501
  4. DESFERAL [Concomitant]
     Active Substance: DEFEROXAMINE MESYLATE
     Indication: PRODUCT USED FOR UNKNOWN INDICATION
     Dosage: 1000 MG
     Route: 030
     Dates: start: 20090327, end: 20090406
  5. RED BLOOD CELLS, LEUCOCYTE DEPLETED [Concomitant]
     Active Substance: HUMAN RED BLOOD CELL
     Indication: PRODUCT USED FOR UNKNOWN INDICATION
     Dosage: 2 U, QW
     Dates: start: 20090416
  6. ICL670A [Suspect]
     Active Substance: DEFERASIROX
     Indication: REFRACTORY CYTOPENIA WITH MULTILINEAGE DYSPLASIA

REACTIONS (5)
  - Shock haemorrhagic [Unknown]
  - Liver disorder [Recovered/Resolved]
  - Gastrointestinal haemorrhage [Recovered/Resolved]
  - Myelodysplastic syndrome [Fatal]
  - Small intestine ulcer [Unknown]

NARRATIVE: CASE EVENT DATE: 20090421
